FAERS Safety Report 9712859 (Version 1)
Quarter: 2013Q4

REPORT INFORMATION
  Report Type: Spontaneous
  Country: US (occurrence: US)
  Receive Date: 20131126
  Receipt Date: 20131126
  Transmission Date: 20140711
  Serious: No
  Sender: FDA-Public Use
  Company Number: US-BRISTOL-MYERS SQUIBB COMPANY-18936765

PATIENT
  Age: 74 Year
  Sex: Female
  Weight: 72.56 kg

DRUGS (4)
  1. BYDUREON 2MG SUSPENSION [Suspect]
     Indication: TYPE 2 DIABETES MELLITUS
     Dosage: START/STOP: 6-7 WEEKS AGO/2-3 WEEKS AGO
     Route: 058
  2. LIPITOR [Concomitant]
  3. KLOR-CON [Concomitant]
  4. METFORMIN [Concomitant]

REACTIONS (5)
  - Nausea [Unknown]
  - Vomiting [Unknown]
  - Diarrhoea [Unknown]
  - Weight decreased [Unknown]
  - Injection site swelling [Not Recovered/Not Resolved]
